FAERS Safety Report 9284327 (Version 3)
Quarter: 2013Q2

REPORT INFORMATION
  Report Type: Spontaneous
  Country: GB (occurrence: GB)
  Receive Date: 20130510
  Receipt Date: 20130520
  Transmission Date: 20140414
  Serious: Yes (Hospitalization, Other)
  Sender: FDA-Public Use
  Company Number: GB-PFIZER INC-0013699701PHAMED

PATIENT
  Age: 7 Year
  Sex: Female
  Weight: 20 kg

DRUGS (3)
  1. IBUPROFEN [Suspect]
     Indication: PYREXIA
     Dosage: 100 MG, SINGLE
     Route: 048
  2. FLUCLOXACILLIN [Concomitant]
     Indication: PYREXIA
     Dosage: UNK
  3. FLUCLOXACILLIN [Concomitant]
     Indication: COUGH

REACTIONS (10)
  - Renal tubular necrosis [Unknown]
  - Renal cortical necrosis [Unknown]
  - Renal failure chronic [Unknown]
  - Blood urea increased [Unknown]
  - Blood creatinine increased [Unknown]
  - Malaise [Unknown]
  - Azotaemia [Unknown]
  - Anuria [Recovered/Resolved]
  - Dehydration [Unknown]
  - Vomiting [Unknown]
